FAERS Safety Report 8459764-2 (Version None)
Quarter: 2012Q2

REPORT INFORMATION
  Report Type: 
  Country: None (occurrence: None)
  Receive Date: 20120622
  Receipt Date: 20120620
  Transmission Date: 20120825
  Serious: Yes (Life-Threatening, Hospitalization, Disabling, Other)
  Sender: FDA-Public Use
  Company Number: US-MERCK-1206USA03441

PATIENT
  Age: 78 Year
  Sex: Female
  Weight: 80 kg

DRUGS (5)
  1. ACTOS [Concomitant]
     Route: 065
  2. METFORMIN [Concomitant]
     Route: 065
  3. SYNTHROID [Concomitant]
     Route: 065
  4. JANUVIA [Suspect]
     Indication: TYPE 2 DIABETES MELLITUS
     Route: 048
     Dates: start: 20070101, end: 20110101
  5. LIPITOR [Concomitant]
     Route: 065

REACTIONS (1)
  - PANCREATIC CARCINOMA [None]
